FAERS Safety Report 25477039 (Version 1)
Quarter: 2025Q2

REPORT INFORMATION
  Report Type: Report from Study
  Country: DE (occurrence: DE)
  Receive Date: 20250625
  Receipt Date: 20250625
  Transmission Date: 20250716
  Serious: Yes (Hospitalization, Other)
  Sender: TEVA
  Company Number: DE-002147023-NVSC2022DE128501

PATIENT
  Sex: Female

DRUGS (6)
  1. NAPROXEN [Suspect]
     Active Substance: NAPROXEN
     Indication: Product used for unknown indication
     Route: 065
     Dates: start: 20210921, end: 20210922
  2. NAPROXEN [Suspect]
     Active Substance: NAPROXEN
     Indication: Product used for unknown indication
     Route: 065
     Dates: start: 20210525
  3. NAPROXEN [Suspect]
     Active Substance: NAPROXEN
     Indication: Product used for unknown indication
     Route: 065
     Dates: start: 20210921
  4. ACEMETACIN [Suspect]
     Active Substance: ACEMETACIN
     Indication: Product used for unknown indication
     Route: 065
     Dates: start: 20230131
  5. ACEMETACIN [Suspect]
     Active Substance: ACEMETACIN
     Indication: Product used for unknown indication
     Route: 065
     Dates: start: 20230131, end: 20230731
  6. ERELZI [Suspect]
     Active Substance: ETANERCEPT-SZZS
     Indication: Psoriatic arthropathy
     Route: 065
     Dates: start: 20210629

REACTIONS (4)
  - Arthralgia [Unknown]
  - Oral herpes [Unknown]
  - Herpes ophthalmic [Unknown]
  - Hypertension [Unknown]

NARRATIVE: CASE EVENT DATE: 20210715
